FAERS Safety Report 6528256-X (Version None)
Quarter: 2010Q1

REPORT INFORMATION
  Report Type: 
  Country: None (occurrence: None)
  Receive Date: 20100105
  Receipt Date: 20100105
  Transmission Date: 20100710
  Serious: Yes (Other)
  Sender: FDA-Public Use
  Company Number: None

PATIENT
  Sex: Female
  Weight: 72.5755 kg

DRUGS (1)
  1. YAZ [Suspect]
     Indication: CONTRACEPTION
     Dosage: TAKE ONE TABLET DAILY EVERYDAY PO
     Route: 048
     Dates: start: 20050701, end: 20050901

REACTIONS (3)
  - ABDOMINAL PAIN [None]
  - GALLBLADDER NON-FUNCTIONING [None]
  - RASH [None]
